FAERS Safety Report 25313910 (Version 1)
Quarter: 2025Q2

REPORT INFORMATION
  Report Type: Spontaneous
  Country: CN (occurrence: CN)
  Receive Date: 20250514
  Receipt Date: 20250514
  Transmission Date: 20250717
  Serious: Yes (Life-Threatening, Other)
  Sender: COSETTE PHARMACEUTICALS INC
  Company Number: CN-SA-2025SA126040

PATIENT
  Age: 75 Year
  Sex: Female
  Weight: 38.2 kg

DRUGS (1)
  1. AMBIEN [Suspect]
     Active Substance: ZOLPIDEM TARTRATE
     Indication: Sleep disorder
     Route: 048
     Dates: start: 20250416, end: 20250416

REACTIONS (2)
  - Coma [Recovered/Resolved]
  - Hypotension [Recovered/Resolved]

NARRATIVE: CASE EVENT DATE: 20250416
